FAERS Safety Report 18761833 (Version 1)
Quarter: 2021Q1

REPORT INFORMATION
  Report Type: Spontaneous
  Country: US (occurrence: US)
  Receive Date: 20210119
  Receipt Date: 20210119
  Transmission Date: 20210419
  Serious: No
  Sender: FDA-Public Use
  Company Number: None

PATIENT
  Age: 67 Year
  Sex: Female
  Weight: 50.3 kg

DRUGS (19)
  1. PIQRAY [Suspect]
     Active Substance: ALPELISIB
     Indication: BREAST CANCER
     Route: 048
     Dates: start: 20210114
  2. ALDACTONE [Concomitant]
     Active Substance: SPIRONOLACTONE
  3. CALTRATE WITH VITAMIN D [Concomitant]
     Active Substance: CALCIUM CARBONATE\CHOLECALCIFEROL
  4. CETIRIZINE HCL [Concomitant]
     Active Substance: CETIRIZINE HYDROCHLORIDE
  5. GABAPENTIN. [Concomitant]
     Active Substance: GABAPENTIN
  6. IBUPROFEN 100 JUNIOR STRENGTH [Concomitant]
  7. MILK OF MAGNESIA CONCENTRATE [Concomitant]
  8. MULTI VITAMIN DAILY [Concomitant]
  9. TAGAMET HB [Concomitant]
     Active Substance: CIMETIDINE
  10. ZOFRAN [Concomitant]
     Active Substance: ONDANSETRON HYDROCHLORIDE
  11. EXCEDRIN MIGRAINE [Concomitant]
     Active Substance: ACETAMINOPHEN\ASPIRIN\CAFFEINE
  12. VITAMIN D (ERGOCALCIFEROL) [Concomitant]
     Active Substance: ERGOCALCIFEROL
  13. BAYER ASPIRIN [Concomitant]
     Active Substance: ASPIRIN
  14. LACTULOSE. [Concomitant]
     Active Substance: LACTULOSE
  15. OMEPRAZOLE. [Concomitant]
     Active Substance: OMEPRAZOLE
  16. REGLAN [Concomitant]
     Active Substance: METOCLOPRAMIDE HYDROCHLORIDE
  17. TRAMADOL HCL [Concomitant]
     Active Substance: TRAMADOL HYDROCHLORIDE
  18. BISACODYL EC [Concomitant]
     Active Substance: BISACODYL
  19. PEPTO?BISMOL [Concomitant]
     Active Substance: BISMUTH SUBSALICYLATE

REACTIONS (2)
  - Flatulence [None]
  - Vomiting [None]

NARRATIVE: CASE EVENT DATE: 20210114
